FAERS Safety Report 6608908-3 (Version None)
Quarter: 2010Q1

REPORT INFORMATION
  Report Type: 
  Country: None (occurrence: None)
  Receive Date: 20100301
  Receipt Date: 20100217
  Transmission Date: 20100710
  Serious: Yes (Other)
  Sender: FDA-Public Use
  Company Number: JP-PFIZER INC-2010023395

PATIENT
  Age: 58 Year
  Sex: Male

DRUGS (1)
  1. GABAPEN [Suspect]
     Indication: PAIN
     Dosage: FREQUENCY: 3X/DAY,
     Route: 048
     Dates: start: 20100210

REACTIONS (2)
  - ECZEMA [None]
  - URINE OUTPUT DECREASED [None]
